FAERS Safety Report 7640076-1 (Version None)
Quarter: 2011Q3

REPORT INFORMATION
  Report Type: 
  Country: None (occurrence: None)
  Receive Date: 20110727
  Receipt Date: 20110718
  Transmission Date: 20111222
  Serious: Yes (Hospitalization, Other)
  Sender: FDA-Public Use
  Company Number: US-ASTRAZENECA-2010SE48550

PATIENT
  Age: 53 Year
  Sex: Male
  Weight: 83.9 kg

DRUGS (10)
  1. CRESTOR [Suspect]
     Route: 048
  2. BYSTOLIC [Concomitant]
  3. CRESTOR [Suspect]
     Route: 048
  4. LASIX [Concomitant]
  5. CRESTOR [Suspect]
     Route: 048
  6. VALIUM [Concomitant]
  7. PLAVIX [Concomitant]
  8. AVAPRO [Concomitant]
  9. ZETIA [Concomitant]
  10. AVALIDE [Concomitant]
     Dosage: 300/12.5 MG EVERY DAY

REACTIONS (16)
  - DYSURIA [None]
  - PANIC ATTACK [None]
  - CAROTID ARTERY STENOSIS [None]
  - ASTHMA [None]
  - DYSLEXIA [None]
  - FALL [None]
  - HYPERTENSION [None]
  - ARTERIAL OCCLUSIVE DISEASE [None]
  - ROTATOR CUFF SYNDROME [None]
  - HYPERLIPIDAEMIA [None]
  - HYPOTENSION [None]
  - NEUROFIBROMATOSIS [None]
  - STENT PLACEMENT [None]
  - CEREBROVASCULAR DISORDER [None]
  - CORONARY ARTERY DISEASE [None]
  - BACK PAIN [None]
